FAERS Safety Report 21742333 (Version 1)
Quarter: 2022Q4

REPORT INFORMATION
  Report Type: Spontaneous
  Country: US (occurrence: None)
  Receive Date: 20221216
  Receipt Date: 20221216
  Transmission Date: 20230113
  Serious: No
  Sender: FDA-Public Use
  Company Number: None

PATIENT
  Age: 75 Year
  Sex: Female
  Weight: 58.97 kg

DRUGS (23)
  1. TEMOZOLOMIDE [Suspect]
     Active Substance: TEMOZOLOMIDE
     Indication: Brain neoplasm malignant
     Dosage: FREQUENCY : DAILY;?
     Route: 048
  2. ALIVE [Concomitant]
  3. AMLODIPINE [Concomitant]
  4. ASPIRIN [Concomitant]
  5. COENZYME Q10 [Concomitant]
     Active Substance: DIETARY SUPPLEMENT\UBIDECARENONE
  6. DEXAMETHASONE [Concomitant]
  7. DHEA [Concomitant]
  8. FORTIFY [Concomitant]
  9. HYDROCORTISONE [Concomitant]
  10. LEVOTHYROXINE [Concomitant]
  11. LORAZEPAM [Concomitant]
  12. MAGNESIUM CITRATE [Concomitant]
  13. MELATONIN CR [Concomitant]
  14. NALTREXONE [Concomitant]
     Active Substance: NALTREXONE
  15. OMEGA-3 ACIDS [Concomitant]
     Active Substance: OMEGA-3 FATTY ACIDS
  16. ONDANSETRON [Concomitant]
  17. QUERCETIN [Concomitant]
  18. SKELATAL STRENGTH [Concomitant]
  19. TUMERIC-GINGER [Concomitant]
  20. VITAMIN A [Concomitant]
  21. VITAMIN B [Concomitant]
  22. VITAMIN C [Concomitant]
  23. ZINC [Concomitant]

REACTIONS (1)
  - Hospice care [None]
